FAERS Safety Report 17310154 (Version 1)
Quarter: 2020Q1

REPORT INFORMATION
  Report Type: Spontaneous
  Country: US (occurrence: US)
  Receive Date: 20200123
  Receipt Date: 20200123
  Transmission Date: 20200409
  Serious: No
  Sender: FDA-Public Use
  Company Number: US-TEVA-2020-US-1171389

PATIENT
  Sex: Female

DRUGS (2)
  1. JUNEL FE 1/20 [Suspect]
     Active Substance: ETHINYL ESTRADIOL\NORETHINDRONE ACETATE
     Dosage: (NORETHINDRONE ACETATE AND ETHINYL ESTRADIOL AND FERROUS FUMARATE)
     Route: 065
     Dates: start: 20200101
  2. JUNEL FE 1/20 [Suspect]
     Active Substance: ETHINYL ESTRADIOL\NORETHINDRONE ACETATE
     Indication: CONTRACEPTION
     Dosage: (NORETHINDRONE ACETATE AND ETHINYL ESTRADIOL AND FERROUS FUMARATE)
     Route: 065

REACTIONS (4)
  - Paraesthesia [Unknown]
  - Therapeutic product effect decreased [Unknown]
  - Dysmenorrhoea [Unknown]
  - Product storage error [Unknown]

NARRATIVE: CASE EVENT DATE: 20200101
